FAERS Safety Report 6917981-4 (Version None)
Quarter: 2010Q3

REPORT INFORMATION
  Report Type: 
  Country: None (occurrence: None)
  Receive Date: 20100810
  Receipt Date: 20091103
  Transmission Date: 20110219
  Serious: No
  Sender: FDA-Public Use
  Company Number: US-PFIZER INC-2009290546

PATIENT
  Sex: Female
  Weight: 112.9 kg

DRUGS (6)
  1. TOVIAZ [Suspect]
     Indication: HYPERTONIC BLADDER
     Dosage: 4 MG, 1X/DAY
     Route: 048
     Dates: start: 20090822, end: 20090831
  2. REGLAN [Concomitant]
     Dosage: 10 MG, AS NEEDED
     Route: 048
  3. PREVACID [Concomitant]
     Dosage: 30 MG, 1X/DAY
     Route: 048
  4. LORTAB [Concomitant]
     Indication: PAIN
     Dosage: [HYDROCODONE BITARTRATE 10 MG/PARACETAMOL 500 MG]
     Route: 048
  5. PREMPRO [Concomitant]
     Dosage: UNK
  6. RELPAX [Concomitant]
     Dosage: 0.25 MG, 1X/DAY

REACTIONS (1)
  - DIARRHOEA [None]
